FAERS Safety Report 7635529-6 (Version None)
Quarter: 2011Q3

REPORT INFORMATION
  Report Type: 
  Country: None (occurrence: None)
  Receive Date: 20110718
  Receipt Date: 20110704
  Transmission Date: 20111222
  Serious: Yes (Hospitalization)
  Sender: FDA-Public Use
  Company Number: 1000022089

PATIENT
  Age: 85 Year
  Sex: Male
  Weight: 100 kg

DRUGS (7)
  1. FUROSEMIDE [Concomitant]
  2. AMLODIPINE [Concomitant]
  3. WARFARIN SODIUM [Concomitant]
  4. CITALOPRAM HYDROBROMIDE [Suspect]
     Indication: DEPRESSION
     Dosage: 20 MG (20 MG, 1 IN 1 D), ORAL
     Route: 048
  5. OMEPRAZOLE [Concomitant]
  6. PHENOBARBITAL TAB [Concomitant]
  7. SIMVASTATIN [Concomitant]

REACTIONS (1)
  - CONVULSION [None]
